FAERS Safety Report 23859374 (Version 4)
Quarter: 2024Q4

REPORT INFORMATION
  Report Type: Spontaneous
  Country: CA (occurrence: CA)
  Receive Date: 20240515
  Receipt Date: 20241007
  Transmission Date: 20250115
  Serious: Yes (Other)
  Sender: PFIZER
  Company Number: CA-PFIZER INC-202400102822

PATIENT
  Age: 5 Year
  Sex: Male

DRUGS (2)
  1. NGENLA [Suspect]
     Active Substance: SOMATROGON-GHLA
     Dosage: 1 DF, WEEKLY (10.2MG/WEEK 1DAY/WEEK32G 24MG PREFILLED PEN)
     Route: 058
     Dates: start: 20240109
  2. NORDITROPIN [Concomitant]
     Active Substance: SOMATROPIN
     Dosage: UNK (0.45)
     Dates: start: 202303

REACTIONS (2)
  - Adrenocortical insufficiency acute [Not Recovered/Not Resolved]
  - Injection site pain [Not Recovered/Not Resolved]

NARRATIVE: CASE EVENT DATE: 20240101
